FAERS Safety Report 23379374 (Version 2)
Quarter: 2024Q2

REPORT INFORMATION
  Report Type: Report from Study
  Country: DE (occurrence: DE)
  Receive Date: 20240108
  Receipt Date: 20240409
  Transmission Date: 20240716
  Serious: Yes (Hospitalization, Other)
  Sender: FDA-Public Use
  Company Number: DE-EMA-DD-20230913-7185937-104309

PATIENT
  Age: 27 Year
  Sex: Male
  Weight: 74 kg

DRUGS (4)
  1. FILGRASTIM [Suspect]
     Active Substance: FILGRASTIM
     Dosage: 3120 UG, IN TOTAL
     Route: 058
     Dates: start: 20120715, end: 20120719
  2. FILGRASTIM [Suspect]
     Active Substance: FILGRASTIM
     Dosage: 3120 UG, IN TOTAL
     Route: 058
     Dates: start: 20120715, end: 20120719
  3. FILGRASTIM [Suspect]
     Active Substance: FILGRASTIM
     Dosage: UNK (4 X 30 UU/0.5 ML)
     Route: 058
  4. FILGRASTIM [Suspect]
     Active Substance: FILGRASTIM
     Indication: Stem cell donor
     Dosage: UNK (4 X 48 UU/0.5 ML)
     Route: 058

REACTIONS (3)
  - Addison^s disease [Recovered/Resolved with Sequelae]
  - Bone pain [Recovered/Resolved]
  - Bone pain [Recovered/Resolved]

NARRATIVE: CASE EVENT DATE: 20120716
